FAERS Safety Report 5335378-8 (Version None)
Quarter: 2007Q2

REPORT INFORMATION
  Report Type: 
  Country: None (occurrence: None)
  Receive Date: 20070525
  Receipt Date: 20070514
  Transmission Date: 20071010
  Serious: Yes (Other)
  Sender: FDA-Public Use
  Company Number: FR-PFIZER INC-2007039955

PATIENT
  Sex: Female

DRUGS (2)
  1. LYRICA [Suspect]
     Indication: NEURALGIA
  2. DRUG, UNSPECIFIED [Concomitant]
     Indication: HYPERTENSION

REACTIONS (2)
  - DYSURIA [None]
  - NEUROGENIC BLADDER [None]
